FAERS Safety Report 15890221 (Version 3)
Quarter: 2019Q1

REPORT INFORMATION
  Report Type: Report from Study
  Country: None (occurrence: ES)
  Receive Date: 20190130
  Receipt Date: 20190201
  Transmission Date: 20190417
  Serious: Yes (Hospitalization, Other)
  Sender: FDA-Public Use
  Company Number: ES-ABBVIE-19S-144-2633680-00

PATIENT
  Age: 70 Year
  Sex: Female
  Weight: 74 kg

DRUGS (1)
  1. DUODOPA [Suspect]
     Active Substance: CARBIDOPA\LEVODOPA
     Indication: PARKINSON^S DISEASE
     Route: 050
     Dates: start: 20190117, end: 20190121

REACTIONS (8)
  - Stoma site discharge [Not Recovered/Not Resolved]
  - Medical device pain [Unknown]
  - Therapy cessation [Unknown]
  - Stoma site reaction [Recovering/Resolving]
  - Stoma site pain [Recovering/Resolving]
  - On and off phenomenon [Recovered/Resolved]
  - Stoma site erythema [Recovering/Resolving]
  - Medical device site warmth [Recovering/Resolving]

NARRATIVE: CASE EVENT DATE: 201901
